FAERS Safety Report 21748720 (Version 1)
Quarter: 2022Q4

REPORT INFORMATION
  Report Type: Other
  Country: US (occurrence: None)
  Receive Date: 20221219
  Receipt Date: 20221219
  Transmission Date: 20230113
  Serious: Yes (Disabling)
  Sender: FDA-Public Use
  Company Number: US-ROCHE-3240158

PATIENT
  Age: 66 Year
  Sex: Male

DRUGS (3)
  1. EVRYSDI [Suspect]
     Active Substance: RISDIPLAM
     Indication: Spinal muscular atrophy
     Dosage: 5 MG TAKEN DAILY
     Route: 048
     Dates: start: 20210922
  2. PRILOSEC [Concomitant]
     Active Substance: OMEPRAZOLE MAGNESIUM
     Dosage: DELAYED RELEASE CAPSULE
     Route: 048
  3. MOBICAM [MELOXICAM] [Concomitant]
     Route: 048

REACTIONS (4)
  - Muscular weakness [Recovered/Resolved]
  - COVID-19 [Recovered/Resolved]
  - Peripheral swelling [Unknown]
  - Muscular weakness [Unknown]

NARRATIVE: CASE EVENT DATE: 20220729
